FAERS Safety Report 5231909-7 (Version None)
Quarter: 2007Q1

REPORT INFORMATION
  Report Type: 
  Country: None (occurrence: None)
  Receive Date: 20070202
  Receipt Date: 20070117
  Transmission Date: 20070707
  Serious: Yes (Hospitalization)
  Sender: FDA-Public Use
  Company Number: 2007BI001263

PATIENT
  Age: 45 Year
  Sex: Male

DRUGS (3)
  1. AVONEX [Suspect]
     Indication: MULTIPLE SCLEROSIS
     Dosage: 30 UG;QW;IM
     Route: 030
     Dates: start: 20041205, end: 20070101
  2. MEMORY ARICEPT [Concomitant]
  3. SOLU-MEDROL [Concomitant]

REACTIONS (1)
  - NECROTISING GRANULOMATOUS LYMPHADENITIS [None]
